FAERS Safety Report 25800025 (Version 1)
Quarter: 2025Q3

REPORT INFORMATION
  Report Type: Spontaneous
  Country: US (occurrence: US)
  Receive Date: 20250914
  Receipt Date: 20250914
  Transmission Date: 20251020
  Serious: No
  Sender: ELI LILLY AND COMPANY
  Company Number: US-ELI_LILLY_AND_COMPANY-US202509006378

PATIENT
  Age: 71 Year
  Sex: Female

DRUGS (12)
  1. ZEPBOUND [Suspect]
     Active Substance: TIRZEPATIDE
     Indication: Product used for unknown indication
     Dosage: UNK UNK, WEEKLY (1/W)
     Route: 058
     Dates: start: 202502
  2. ZEPBOUND [Suspect]
     Active Substance: TIRZEPATIDE
     Indication: Product used for unknown indication
     Dosage: UNK UNK, WEEKLY (1/W)
     Route: 058
     Dates: start: 202502
  3. ZEPBOUND [Suspect]
     Active Substance: TIRZEPATIDE
     Indication: Product used for unknown indication
     Dosage: UNK UNK, WEEKLY (1/W)
     Route: 058
     Dates: start: 202502
  4. ZEPBOUND [Suspect]
     Active Substance: TIRZEPATIDE
     Indication: Product used for unknown indication
     Dosage: UNK UNK, WEEKLY (1/W)
     Route: 058
     Dates: start: 202502
  5. ZEPBOUND [Suspect]
     Active Substance: TIRZEPATIDE
     Dosage: 12.5 MG, WEEKLY (1/W)
     Route: 058
  6. ZEPBOUND [Suspect]
     Active Substance: TIRZEPATIDE
     Dosage: 12.5 MG, WEEKLY (1/W)
     Route: 058
  7. ZEPBOUND [Suspect]
     Active Substance: TIRZEPATIDE
     Dosage: 12.5 MG, WEEKLY (1/W)
     Route: 058
  8. ZEPBOUND [Suspect]
     Active Substance: TIRZEPATIDE
     Dosage: 12.5 MG, WEEKLY (1/W)
     Route: 058
  9. ZEPBOUND [Suspect]
     Active Substance: TIRZEPATIDE
     Dosage: 12.5 MG, WEEKLY (1/W)
     Route: 058
     Dates: start: 20250812
  10. ZEPBOUND [Suspect]
     Active Substance: TIRZEPATIDE
     Dosage: 12.5 MG, WEEKLY (1/W)
     Route: 058
     Dates: start: 20250812
  11. ZEPBOUND [Suspect]
     Active Substance: TIRZEPATIDE
     Dosage: 12.5 MG, WEEKLY (1/W)
     Route: 058
     Dates: start: 20250812
  12. ZEPBOUND [Suspect]
     Active Substance: TIRZEPATIDE
     Dosage: 12.5 MG, WEEKLY (1/W)
     Route: 058
     Dates: start: 20250812

REACTIONS (2)
  - Food craving [Unknown]
  - Hunger [Unknown]
